FAERS Safety Report 9490041 (Version 2)
Quarter: 2013Q3

REPORT INFORMATION
  Report Type: Spontaneous
  Country: US (occurrence: US)
  Receive Date: 20130829
  Receipt Date: 20130920
  Transmission Date: 20140515
  Serious: Yes (Death)
  Sender: FDA-Public Use
  Company Number: US-AMGEN-USASP2013060211

PATIENT
  Age: 98 Year
  Sex: Female

DRUGS (14)
  1. PROLIA [Suspect]
     Indication: OSTEOPOROSIS POSTMENOPAUSAL
     Dosage: 60 MG, Q6MO
     Route: 065
  2. NAMENDA [Concomitant]
     Dosage: 10 MG, UNK
     Route: 048
  3. ULTRACET [Concomitant]
  4. EXELON                             /01383201/ [Concomitant]
     Dosage: 9.5 MG PATCH, QD
  5. DOCUSATE [Concomitant]
     Dosage: 10 MG, QD
  6. AMLODIPINE [Concomitant]
     Dosage: 2.5 MG, QD
  7. AMITRIPTYLINE [Concomitant]
     Dosage: 25 MG, QHS
  8. CALTRATE                           /00944201/ [Concomitant]
     Dosage: UNK UNK, BID
  9. CENTRUM                            /02217401/ [Concomitant]
     Dosage: UNK UNK, QD
  10. VITAMIN D3 [Concomitant]
     Dosage: 2000 UNIT, QD
  11. VITAMIN B12                        /00056201/ [Concomitant]
     Dosage: 1000 MG, NOON
  12. FERROUS FUMARATE [Concomitant]
     Dosage: 65 MG, QD
  13. PRILOSEC                           /00661201/ [Concomitant]
     Dosage: 20 MG, QD
  14. DIGOXIN [Concomitant]

REACTIONS (1)
  - Gastrointestinal perforation [Fatal]
